FAERS Safety Report 6012341-5 (Version None)
Quarter: 2008Q4

REPORT INFORMATION
  Report Type: 
  Country: None (occurrence: None)
  Receive Date: 20081218
  Receipt Date: 20080825
  Transmission Date: 20090506
  Serious: No
  Sender: FDA-Public Use
  Company Number: US-ASTRAZENECA-2008UW17367

PATIENT
  Age: 66 Year
  Sex: Female
  Weight: 50.8 kg

DRUGS (3)
  1. SYMBICORT [Suspect]
     Indication: LUNG DISORDER
     Route: 055
     Dates: start: 20080701
  2. VYVANSE [Suspect]
     Indication: LUNG DISORDER
     Route: 048
     Dates: start: 20071001, end: 20080601
  3. SUDAFED 12 HOUR [Suspect]
     Indication: COUGH
     Route: 048

REACTIONS (2)
  - PHARYNGEAL OEDEMA [None]
  - SWOLLEN TONGUE [None]
